FAERS Safety Report 19458267 (Version 1)
Quarter: 2021Q2

REPORT INFORMATION
  Report Type: Spontaneous
  Country: FR (occurrence: FR)
  Receive Date: 20210624
  Receipt Date: 20210624
  Transmission Date: 20210717
  Serious: Yes (Life-Threatening, Other)
  Sender: FDA-Public Use
  Company Number: FR-PFIZER INC-2021682105

PATIENT
  Age: 74 Year
  Sex: Male
  Weight: 97 kg

DRUGS (2)
  1. ROCEPHINE [Suspect]
     Active Substance: CEFTRIAXONE SODIUM
     Indication: OSTEITIS
     Dosage: 6 G, WEEKLY (2 G, THREE TIMES A WEEK)
     Route: 042
     Dates: start: 20210329, end: 20210428
  2. VFEND [Suspect]
     Active Substance: VORICONAZOLE
     Indication: ASPERGILLUS INFECTION
     Dosage: 400 MG, ONCE A DAY
     Route: 048
     Dates: start: 20210401, end: 20210428

REACTIONS (2)
  - Off label use [Unknown]
  - Agranulocytosis [Not Recovered/Not Resolved]

NARRATIVE: CASE EVENT DATE: 20210401
